FAERS Safety Report 4269503-7 (Version None)
Quarter: 2004Q1

REPORT INFORMATION
  Report Type: 
  Country: None (occurrence: None)
  Receive Date: 20040109
  Receipt Date: 20031225
  Transmission Date: 20041129
  Serious: Yes (Other)
  Sender: FDA-Public Use
  Company Number: 2003IM001286

PATIENT
  Sex: Male

DRUGS (1)
  1. INTERFERON ALFACON-1 (INTERFERON ALFACON-1) [Suspect]
     Dosage: 18 UG;QD; SUBCUTANEOUS
     Route: 058
     Dates: start: 20031001, end: 20031221

REACTIONS (1)
  - HEPATITIS CHOLESTATIC [None]
